FAERS Safety Report 5953373-2 (Version None)
Quarter: 2008Q4

REPORT INFORMATION
  Report Type: 
  Country: None (occurrence: None)
  Receive Date: 20081114
  Receipt Date: 20081106
  Transmission Date: 20090506
  Serious: Yes (Other)
  Sender: FDA-Public Use
  Company Number: AU-ABBOTT-08P-008-0485916-00

PATIENT
  Sex: Male
  Weight: 85 kg

DRUGS (2)
  1. ERYTHROMYCIN BASE [Suspect]
     Indication: DRUG USE FOR UNKNOWN INDICATION
     Dosage: 4 DOSES
     Route: 048
     Dates: start: 20080420, end: 20080427
  2. BLOPRESS PLUS [Concomitant]
     Indication: DRUG USE FOR UNKNOWN INDICATION
     Dosage: 16/12.5 ONE DOSE

REACTIONS (2)
  - ARRHYTHMIA [None]
  - HYPOTENSION [None]
